FAERS Safety Report 9147944 (Version 2)
Quarter: 2013Q1

REPORT INFORMATION
  Report Type: Spontaneous
  Country: US (occurrence: US)
  Receive Date: 20130228
  Receipt Date: 20130318
  Transmission Date: 20140127
  Serious: Yes (Other)
  Sender: FDA-Public Use
  Company Number: US-RB-050388-13

PATIENT
  Age: 44 Year
  Sex: Female

DRUGS (4)
  1. SUBOXONE FILM [Suspect]
     Indication: DRUG DEPENDENCE
     Dosage: SUBOXONE FILM
     Route: 060
     Dates: start: 2010, end: 20101029
  2. SUBOXONE FILM [Suspect]
     Dosage: SUBOXONE FILM
     Route: 060
     Dates: start: 201109
  3. INSULIN [Concomitant]
     Indication: DIABETES MELLITUS
     Dosage: DOSING DETAILS UNKNOWN
     Route: 065
  4. ANTIHYPERTENSIVES [Concomitant]
     Indication: HYPERTENSION
     Dosage: DOSING DETAILS UNKNOWN
     Route: 065

REACTIONS (2)
  - Fall [Recovered/Resolved]
  - Hip fracture [Recovered/Resolved]
